FAERS Safety Report 22062584 (Version 3)
Quarter: 2023Q2

REPORT INFORMATION
  Report Type: Spontaneous
  Country: OM (occurrence: OM)
  Receive Date: 20230306
  Receipt Date: 20230406
  Transmission Date: 20230721
  Serious: Yes (Other)
  Sender: FDA-Public Use
  Company Number: OM-002147023-NVSC2023OM049032

PATIENT
  Age: 43 Year
  Sex: Male

DRUGS (5)
  1. HYRIMOZ [Suspect]
     Active Substance: ADALIMUMAB-ADAZ
     Indication: Behcet^s syndrome
     Dosage: 40 MG, Q2W (2/MONTH)
     Route: 058
     Dates: start: 20211028
  2. HYRIMOZ [Suspect]
     Active Substance: ADALIMUMAB-ADAZ
     Indication: Uveitis
  3. CALCIUM [Concomitant]
     Active Substance: CALCIUM
     Indication: Product used for unknown indication
     Dosage: 1 DOSAGE FORM, QD (3 YEARS)
     Route: 065
     Dates: start: 20200331
  4. AZATHIOPRINE [Concomitant]
     Active Substance: AZATHIOPRINE
     Indication: Product used for unknown indication
     Dosage: 150 MG, QD (TILL LAST PRESC, 3 YEARS)
     Route: 065
     Dates: start: 20200302
  5. COLCHICINE [Concomitant]
     Active Substance: COLCHICINE
     Indication: Product used for unknown indication
     Dosage: UNK
     Route: 065

REACTIONS (4)
  - Behcet^s syndrome [Recovered/Resolved]
  - Uveitis [Recovered/Resolved]
  - Skin lesion [Recovered/Resolved]
  - Pustule [Recovered/Resolved]

NARRATIVE: CASE EVENT DATE: 20220323
